FAERS Safety Report 4696783-6 (Version None)
Quarter: 2005Q2

REPORT INFORMATION
  Report Type: 
  Country: None (occurrence: None)
  Receive Date: 20050120
  Receipt Date: 20050120
  Transmission Date: 20051028
  Serious: No
  Sender: FDA-Public Use
  Company Number: None

PATIENT
  Age: 77 Year
  Sex: Female
  Weight: 74.8435 kg

DRUGS (2)
  1. LISINOPRIL [Suspect]
     Indication: CORONARY ARTERY DISEASE
     Dosage: ONE PO  Q DAY
     Route: 048
  2. LISINOPRIL [Suspect]
     Indication: HYPERTENSION
     Dosage: ONE PO  Q DAY
     Route: 048

REACTIONS (1)
  - ANGINA PECTORIS [None]
